FAERS Safety Report 7894200-6 (Version None)
Quarter: 2011Q4

REPORT INFORMATION
  Report Type: 
  Country: None (occurrence: None)
  Receive Date: 20111104
  Receipt Date: 20111103
  Transmission Date: 20120403
  Serious: Yes (Other)
  Sender: FDA-Public Use
  Company Number: SE-AMGEN-SWESP2011047764

PATIENT
  Sex: Male
  Weight: 67 kg

DRUGS (7)
  1. NPLATE [Suspect]
     Indication: IDIOPATHIC THROMBOCYTOPENIC PURPURA
     Dosage: 1 MUG/KG, UNK
     Route: 058
     Dates: start: 20110104, end: 20110823
  2. HORMONES [Concomitant]
     Indication: ENDOCRINE DISORDER
  3. NPLATE [Suspect]
     Dosage: 4 MUG/KG, UNK
     Route: 058
  4. KIOVIG                             /00025201/ [Concomitant]
     Dosage: 25 UNK, UNK
     Dates: start: 20110823, end: 20110825
  5. KIOVIG                             /00025201/ [Concomitant]
     Dosage: 25 G, UNK
     Route: 042
     Dates: start: 20110504, end: 20110505
  6. KIOVIG                             /00025201/ [Concomitant]
     Dosage: 30 G, UNK
     Route: 042
     Dates: start: 20110829
  7. CLEMASTINE FUMARATE [Concomitant]
     Dosage: 1 ML, UNK
     Dates: start: 20110829

REACTIONS (2)
  - CHRONIC LYMPHOCYTIC LEUKAEMIA [None]
  - THERAPEUTIC RESPONSE DECREASED [None]
